FAERS Safety Report 4388430-8 (Version None)
Quarter: 2004Q2

REPORT INFORMATION
  Report Type: 
  Country: None (occurrence: None)
  Receive Date: 20040625
  Receipt Date: 20040624
  Transmission Date: 20050107
  Serious: Yes (Hospitalization)
  Sender: FDA-Public Use
  Company Number: 2004-117393-NL

PATIENT
  Age: 60 Year
  Sex: Female

DRUGS (2)
  1. MIRTAZAPINE [Suspect]
     Indication: DEPRESSION
     Dosage: 30 MG ORAL
     Route: 048
  2. MIRTAZAPINE [Suspect]
     Indication: INSOMNIA
     Dosage: 30 MG ORAL
     Route: 048

REACTIONS (1)
  - PLASMACYTOMA [None]
